FAERS Safety Report 4629883-7 (Version None)
Quarter: 2005Q2

REPORT INFORMATION
  Report Type: 
  Country: None (occurrence: None)
  Receive Date: 20050406
  Receipt Date: 20050322
  Transmission Date: 20051028
  Serious: Yes (Life-Threatening, Hospitalization, Other)
  Sender: FDA-Public Use
  Company Number: DE_050315533

PATIENT
  Age: 73 Year
  Sex: Male

DRUGS (3)
  1. CYMBALTA [Suspect]
     Indication: DEPRESSION
     Dosage: 60 MG DAY
     Dates: start: 20050301, end: 20050307
  2. ANTIHYPERTENSIVES [Concomitant]
  3. INSULIN [Concomitant]

REACTIONS (2)
  - BLOOD PRESSURE INCREASED [None]
  - LEFT VENTRICULAR FAILURE [None]
